FAERS Safety Report 17456062 (Version 2)
Quarter: 2020Q1

REPORT INFORMATION
  Report Type: Spontaneous
  Country: IT (occurrence: IT)
  Receive Date: 20200225
  Receipt Date: 20200306
  Transmission Date: 20200409
  Serious: Yes (Life-Threatening, Hospitalization, Other)
  Sender: FDA-Public Use
  Company Number: IT-MACLEODS PHARMACEUTICALS US LTD-MAC2020025350

PATIENT

DRUGS (4)
  1. PREGABALIN. [Concomitant]
     Active Substance: PREGABALIN
     Indication: SEIZURE
     Dosage: UNK
     Route: 065
  2. QUETIAPINE. [Suspect]
     Active Substance: QUETIAPINE
     Indication: PRODUCT USED FOR UNKNOWN INDICATION
     Dosage: UNK
     Route: 065
  3. VALPROIC ACID. [Concomitant]
     Active Substance: VALPROIC ACID
     Indication: SEIZURE
     Dosage: UNK
     Route: 065
  4. TRAMADOL. [Suspect]
     Active Substance: TRAMADOL
     Indication: PRODUCT USED FOR UNKNOWN INDICATION
     Dosage: 6 GRAM, SINGLE
     Route: 065

REACTIONS (13)
  - Polyneuropathy [Recovered/Resolved]
  - Shock [Recovered/Resolved]
  - Drug level increased [Unknown]
  - Mitral valve incompetence [Recovered/Resolved]
  - Dilatation ventricular [Recovering/Resolving]
  - Acid-base balance disorder mixed [Unknown]
  - Intentional overdose [Recovering/Resolving]
  - Metabolic encephalopathy [Recovered/Resolved]
  - Hepatic failure [Unknown]
  - Intensive care unit acquired weakness [Recovered/Resolved]
  - Toxicity to various agents [Recovering/Resolving]
  - Acute kidney injury [Recovering/Resolving]
  - Multiple organ dysfunction syndrome [Recovered/Resolved]
